FAERS Safety Report 7123647-0 (Version None)
Quarter: 2010Q4

REPORT INFORMATION
  Report Type: 
  Country: None (occurrence: None)
  Receive Date: 20101125
  Receipt Date: 20101115
  Transmission Date: 20110411
  Serious: Yes (Other)
  Sender: FDA-Public Use
  Company Number: US-BRISTOL-MYERS SQUIBB COMPANY-10949386

PATIENT
  Age: 7 Year
  Sex: Male
  Weight: 24 kg

DRUGS (4)
  1. BMS232632 [Suspect]
     Indication: HIV INFECTION
     Dosage: 1 250MGQD,7 450MGQD;12 650MGQD.HELD 30JUL01.
     Route: 048
     Dates: start: 20010111
  2. DIDANOSINE [Suspect]
     Indication: HIV INFECTION
     Dosage: HELD ON30JUL-01
     Route: 048
     Dates: start: 20010111
  3. STAVUDINE [Suspect]
     Indication: HIV INFECTION
     Dosage: HELD ON30JUL-01
     Route: 048
     Dates: start: 20010111, end: 20010730
  4. SEPTRA [Concomitant]
     Dosage: DOSING INFORMATION NOT REPORTED
     Dates: start: 19970213

REACTIONS (1)
  - ATRIOVENTRICULAR BLOCK FIRST DEGREE [None]
